FAERS Safety Report 7821532-X (Version None)
Quarter: 2011Q4

REPORT INFORMATION
  Report Type: 
  Country: None (occurrence: None)
  Receive Date: 20111018
  Receipt Date: 20110615
  Transmission Date: 20120403
  Serious: No
  Sender: FDA-Public Use
  Company Number: US-ASTRAZENECA-2011SE36722

PATIENT
  Age: 63 Year
  Sex: Female

DRUGS (2)
  1. SYMBICORT [Suspect]
     Dosage: 2 PUFFS A DAY
     Route: 055
  2. SYMBICORT [Suspect]
     Dosage: 3 PUFFS A DAY
     Route: 055

REACTIONS (2)
  - INCORRECT DOSE ADMINISTERED [None]
  - HEADACHE [None]
